FAERS Safety Report 8267548-3 (Version None)
Quarter: 2012Q2

REPORT INFORMATION
  Report Type: 
  Country: None (occurrence: None)
  Receive Date: 20120405
  Receipt Date: 20120405
  Transmission Date: 20120825
  Serious: Yes (Hospitalization)
  Sender: FDA-Public Use
  Company Number: None

PATIENT
  Age: 77 Year
  Sex: Male
  Weight: 86 kg

DRUGS (1)
  1. GLIPIZIDE [Suspect]
     Indication: DIABETES MELLITUS
     Dosage: 5 MG BID PO ; 500 MG
     Route: 048
     Dates: start: 20111115, end: 20120129

REACTIONS (6)
  - LOCALISED INFECTION [None]
  - CONFUSIONAL STATE [None]
  - HYPOGLYCAEMIA [None]
  - OVERDOSE [None]
  - LEUKOCYTOSIS [None]
  - CHOLECYSTITIS [None]
